FAERS Safety Report 14261550 (Version 4)
Quarter: 2018Q3

REPORT INFORMATION
  Report Type: Report from Study
  Country: US (occurrence: US)
  Receive Date: 20171208
  Receipt Date: 20180815
  Transmission Date: 20181010
  Serious: Yes (Hospitalization, Other)
  Sender: FDA-Public Use
  Company Number: US-ROCHE-2034502

PATIENT
  Age: 48 Year
  Sex: Female
  Weight: 51.76 kg

DRUGS (4)
  1. OCREVUS [Suspect]
     Active Substance: OCRELIZUMAB
     Indication: MULTIPLE SCLEROSIS
     Dosage: ONGOING: UNKNOWN
     Route: 042
     Dates: start: 201708
  2. OCREVUS [Suspect]
     Active Substance: OCRELIZUMAB
     Indication: PRIMARY PROGRESSIVE MULTIPLE SCLEROSIS
     Route: 042
     Dates: start: 20170808
  3. OCREVUS [Suspect]
     Active Substance: OCRELIZUMAB
     Route: 042
     Dates: start: 20170821
  4. OCREVUS [Suspect]
     Active Substance: OCRELIZUMAB
     Dosage: ONGOING: YES?SHE RECEIVED RECEIVED HER MOST RECENT OCRELIZUMAB INFUSION.
     Route: 042
     Dates: start: 20180308

REACTIONS (22)
  - Generalised tonic-clonic seizure [Unknown]
  - Traumatic liver injury [Recovering/Resolving]
  - Dysgraphia [Unknown]
  - Memory impairment [Not Recovered/Not Resolved]
  - Tooth fracture [Unknown]
  - Asthenia [Unknown]
  - Traumatic liver injury [Unknown]
  - Multiple sclerosis relapse [Unknown]
  - Seizure [Not Recovered/Not Resolved]
  - Thrombosis [Unknown]
  - Pleural effusion [Recovering/Resolving]
  - Balance disorder [Unknown]
  - Hepatic haemorrhage [Recovering/Resolving]
  - General physical health deterioration [Unknown]
  - Fall [Recovering/Resolving]
  - Haematoma [Recovering/Resolving]
  - Urinary tract infection [Recovered/Resolved]
  - Fall [Unknown]
  - Rib fracture [Recovering/Resolving]
  - Confusional state [Unknown]
  - Rib fracture [Recovered/Resolved]
  - Gait inability [Not Recovered/Not Resolved]

NARRATIVE: CASE EVENT DATE: 201710
